FAERS Safety Report 16877727 (Version 1)
Quarter: 2019Q4

REPORT INFORMATION
  Report Type: Spontaneous
  Country: JP (occurrence: JP)
  Receive Date: 20191002
  Receipt Date: 20191002
  Transmission Date: 20200122
  Serious: Yes (Other)
  Sender: FDA-Public Use
  Company Number: JP-CELGENEUS-JPN-20190908866

PATIENT
  Age: 66 Year
  Sex: Male

DRUGS (1)
  1. ABRAXANE [Suspect]
     Active Substance: PACLITAXEL
     Indication: PRODUCT USED FOR UNKNOWN INDICATION
     Route: 041

REACTIONS (5)
  - Liver disorder [Unknown]
  - Alopecia [Unknown]
  - Epistaxis [Unknown]
  - Neutrophil count decreased [Unknown]
  - White blood cell count decreased [Unknown]
